FAERS Safety Report 7624470-0 (Version None)
Quarter: 2011Q3

REPORT INFORMATION
  Report Type: 
  Country: None (occurrence: None)
  Receive Date: 20110720
  Receipt Date: 20110711
  Transmission Date: 20111222
  Serious: Yes (Other)
  Sender: FDA-Public Use
  Company Number: CN-ASTRAZENECA-2011SE38975

PATIENT
  Sex: Male

DRUGS (5)
  1. COMBIVENT [Concomitant]
  2. ATROVENT [Concomitant]
  3. DRUGS FOR HYPERTENSION [Concomitant]
     Indication: HYPERTENSION
  4. PULMICORT [Suspect]
     Route: 055
     Dates: start: 20110101
  5. PULMICORT [Suspect]
     Indication: ASTHMA
     Route: 055
     Dates: start: 20110601, end: 20110101

REACTIONS (1)
  - WHEEZING [None]
